FAERS Safety Report 9140590 (Version 2)
Quarter: 2013Q2

REPORT INFORMATION
  Report Type: Spontaneous
  Country: US (occurrence: US)
  Receive Date: 20130305
  Receipt Date: 20130419
  Transmission Date: 20140414
  Serious: Yes (Death, Hospitalization)
  Sender: FDA-Public Use
  Company Number: US-INCYTE CORPORATION-2013IN000398

PATIENT
  Sex: Male

DRUGS (1)
  1. JAKAFI [Suspect]
     Indication: MYELOFIBROSIS
     Dosage: 20 MG, BID
     Route: 048
     Dates: start: 201211, end: 201302

REACTIONS (5)
  - Cardiac valve disease [Fatal]
  - Aortic stenosis [Fatal]
  - Cardiomyopathy [Fatal]
  - Renal failure [Unknown]
  - Cardiac failure [Unknown]
